FAERS Safety Report 10025190 (Version 1)
Quarter: 2014Q1

REPORT INFORMATION
  Report Type: Other
  Country: GB (occurrence: GB)
  Receive Date: 20140320
  Receipt Date: 20140320
  Transmission Date: 20141002
  Serious: Yes (Other)
  Sender: FDA-Public Use
  Company Number: GB-PERRIGO-14GB002812

PATIENT
  Age: 27 Year
  Sex: Female
  Weight: 67 kg

DRUGS (3)
  1. IBUPROFEN 16028/0027 200 MG [Suspect]
     Indication: PRODUCT USED FOR UNKNOWN INDICATION
     Dosage: UNK
     Route: 065
  2. MEFENAMIC ACID [Suspect]
     Indication: MENORRHAGIA
     Dosage: UNK
     Route: 048
     Dates: start: 20131111, end: 20131214
  3. FEMODENE [Concomitant]
     Indication: PRODUCT USED FOR UNKNOWN INDICATION
     Route: 065

REACTIONS (3)
  - Abdominal pain [Recovered/Resolved with Sequelae]
  - Gastric ulcer [Unknown]
  - Vomiting [Recovered/Resolved with Sequelae]
